FAERS Safety Report 9482797 (Version 1)
Quarter: 2013Q3

REPORT INFORMATION
  Report Type: Spontaneous
  Country: US (occurrence: US)
  Receive Date: 20130828
  Receipt Date: 20130828
  Transmission Date: 20140515
  Serious: Yes (Hospitalization)
  Sender: FDA-Public Use
  Company Number: US-B.I. PHARMACEUTICALS,INC./RIDGEFIELD-2013-BI-26282BP

PATIENT
  Age: 74 Year
  Sex: Female
  Weight: 91 kg

DRUGS (13)
  1. PRADAXA [Suspect]
     Indication: PROPHYLAXIS
     Route: 048
     Dates: start: 2011
  2. CYCLOBENZAPRINE [Concomitant]
     Indication: BACK PAIN
     Route: 048
  3. LORAZEPAM [Concomitant]
     Indication: ANXIETY
     Route: 048
  4. HYDROCHLOROTHIAZIDE [Concomitant]
     Indication: HYPERTENSION
     Dosage: 25 MG
     Route: 048
  5. OROTHIAZIDE [Concomitant]
     Indication: HYPERTENSION
     Dosage: 25 MG
     Route: 048
  6. HYDROCODONE [Concomitant]
     Indication: BACK PAIN
     Route: 048
  7. FERROUS SULFATE [Concomitant]
     Route: 048
  8. LEVOTHYROXINE [Concomitant]
     Indication: HYPOTHYROIDISM
     Dosage: 75 MCG
     Route: 048
  9. CARVEDILOL [Concomitant]
     Dosage: 50 MG
     Route: 048
  10. MECLIZINE [Concomitant]
     Indication: VERTIGO
     Route: 048
  11. WARFARIN [Concomitant]
     Indication: THROMBOSIS
     Dosage: 6 MG
     Route: 048
  12. LISINOPRIL [Concomitant]
     Indication: HYPERTENSION
     Dosage: 40 MG
     Route: 048
  13. RESTASIS EYE DROP [Concomitant]
     Indication: DRY EYE

REACTIONS (5)
  - Brain mass [Recovered/Resolved]
  - Fall [Recovered/Resolved]
  - Confusional state [Not Recovered/Not Resolved]
  - Arthralgia [Recovered/Resolved]
  - Off label use [Recovered/Resolved]
